FAERS Safety Report 25958881 (Version 1)
Quarter: 2025Q4

REPORT INFORMATION
  Report Type: Report from Study
  Country: ZA (occurrence: ZA)
  Receive Date: 20251025
  Receipt Date: 20251025
  Transmission Date: 20260118
  Serious: Yes (Other)
  Sender: ALEXION PHARMACEUTICALS
  Company Number: ZA-AstraZeneca-CH-00976754A

PATIENT
  Age: 71 Year
  Sex: Female

DRUGS (2)
  1. BUDESONIDE\FORMOTEROL [Suspect]
     Active Substance: BUDESONIDE\FORMOTEROL
     Indication: Asthma
     Dosage: 60 MICROGRAM PER INHALATION
  2. Spiractin [Concomitant]
     Indication: Hypertension
     Dosage: 25 MILLIGRAM

REACTIONS (3)
  - Gait disturbance [Unknown]
  - Cardiac arrest [Unknown]
  - Dyspnoea [Unknown]
